FAERS Safety Report 8561689-9 (Version None)
Quarter: 2012Q3

REPORT INFORMATION
  Report Type: 
  Country: None (occurrence: None)
  Receive Date: 20120802
  Receipt Date: 20120725
  Transmission Date: 20120928
  Serious: Yes (Death, Hospitalization, Disabling, Other)
  Sender: FDA-Public Use
  Company Number: US-009507513-2009SP021058

PATIENT

DRUGS (6)
  1. NUVARING [Suspect]
     Indication: CONTRACEPTION
     Dates: start: 20030101
  2. BENADRYL [Concomitant]
     Indication: HYPERSENSITIVITY
  3. NAPROXEN (ALEVE) [Concomitant]
  4. NUVARING [Suspect]
     Indication: PREMENSTRUAL SYNDROME
     Dates: start: 20070501, end: 20070701
  5. IMITREX [Concomitant]
  6. AMBIEN [Concomitant]

REACTIONS (22)
  - ATRIAL THROMBOSIS [None]
  - VENA CAVA THROMBOSIS [None]
  - PALPITATIONS [None]
  - FATIGUE [None]
  - BILIARY DILATATION [None]
  - INCREASED TENDENCY TO BRUISE [None]
  - HEADACHE [None]
  - CONSTIPATION [None]
  - PARAESTHESIA [None]
  - UPPER-AIRWAY COUGH SYNDROME [None]
  - HAEMORRHOIDS [None]
  - TINNITUS [None]
  - BACK PAIN [None]
  - DEEP VEIN THROMBOSIS [None]
  - OCCULT BLOOD POSITIVE [None]
  - BUNION OPERATION [None]
  - PULMONARY EMBOLISM [None]
  - TEMPERATURE INTOLERANCE [None]
  - HYPOACUSIS [None]
  - NASAL CONGESTION [None]
  - OFF LABEL USE [None]
  - BLOOD PRESSURE INCREASED [None]
